FAERS Safety Report 4575567-3 (Version None)
Quarter: 2005Q1

REPORT INFORMATION
  Report Type: 
  Country: None (occurrence: None)
  Receive Date: 20050128
  Receipt Date: 20050128
  Transmission Date: 20050727
  Serious: Yes (Other)
  Sender: FDA-Public Use
  Company Number: None

PATIENT
  Sex: Male
  Weight: 106.8 kg

DRUGS (15)
  1. VANCOMYCIN [Suspect]
     Indication: STAPHYLOCOCCAL INFECTION
     Dosage: 1500MG  Q12H   INTRAVENOU
     Route: 042
     Dates: start: 20040924, end: 20040930
  2. NORVASC [Concomitant]
  3. NOVOLIN R [Concomitant]
  4. PRINIVIL [Concomitant]
  5. TYLENOL [Concomitant]
  6. VASOTEC [Concomitant]
  7. DEMEROL [Concomitant]
  8. PERCOCET [Concomitant]
  9. PHENERGAN [Concomitant]
  10. AMBIEN [Concomitant]
  11. ANCEF [Concomitant]
  12. ZOSYN [Concomitant]
  13. MORPHINE [Concomitant]
  14. GENTAMYCIN SULFATE [Concomitant]
  15. IBUPROFEN [Concomitant]

REACTIONS (5)
  - DIZZINESS [None]
  - DYSPNOEA [None]
  - PRURITUS GENERALISED [None]
  - RASH GENERALISED [None]
  - URTICARIA GENERALISED [None]
